FAERS Safety Report 22050959 (Version 1)
Quarter: 2023Q1

REPORT INFORMATION
  Report Type: Spontaneous
  Country: US (occurrence: None)
  Receive Date: 20230301
  Receipt Date: 20230301
  Transmission Date: 20230418
  Serious: Yes (Hospitalization)
  Sender: FDA-Public Use
  Company Number: None

PATIENT
  Age: 73 Year
  Sex: Male

DRUGS (1)
  1. CAPECITABINE [Suspect]
     Active Substance: CAPECITABINE
     Dosage: FREQUENCY : DAILY;?
     Route: 048
     Dates: start: 20230208

REACTIONS (5)
  - Malignant melanoma [None]
  - Neoplasm progression [None]
  - Fatigue [None]
  - Axillary mass [None]
  - Therapy interrupted [None]

NARRATIVE: CASE EVENT DATE: 20230220
